FAERS Safety Report 15599585 (Version 5)
Quarter: 2019Q2

REPORT INFORMATION
  Report Type: Report from Study
  Country: US (occurrence: US)
  Receive Date: 20181108
  Receipt Date: 20190403
  Transmission Date: 20190711
  Serious: Yes (Hospitalization, Other)
  Sender: FDA-Public Use
  Company Number: US-PFIZER INC-2018421734

PATIENT
  Age: 62 Year
  Sex: Female

DRUGS (3)
  1. IBRANCE [Suspect]
     Active Substance: PALBOCICLIB
     Indication: BREAST CANCER
     Dosage: 125 MG, CYCLIC (DAILY FOR 21 DAYS ON, 7 DAYS OFF)
     Route: 048
     Dates: start: 20181007, end: 20181023
  2. IBRANCE [Suspect]
     Active Substance: PALBOCICLIB
     Dosage: 100 MG, CYCLIC (DAILY FOR 21 DAYS ON, 7 DAYS OFF)
     Route: 048
     Dates: start: 20190122
  3. IBRANCE [Suspect]
     Active Substance: PALBOCICLIB
     Dosage: 75 MG, CYCLIC, (DAILY FOR 21 DAYS ON, 7 DAYS OFF)
     Route: 048
     Dates: start: 20181127

REACTIONS (18)
  - Leukopenia [Unknown]
  - Hiccups [Unknown]
  - Oropharyngeal pain [Unknown]
  - Rash [Recovered/Resolved]
  - Nasopharyngitis [Unknown]
  - Sinus congestion [Unknown]
  - Pyrexia [Recovered/Resolved]
  - Bone marrow failure [Recovered/Resolved]
  - Anosmia [Unknown]
  - Headache [Unknown]
  - Myalgia [Unknown]
  - Vision blurred [Unknown]
  - Severe acute respiratory syndrome [Recovered/Resolved]
  - Taste disorder [Unknown]
  - Insomnia [Unknown]
  - Arthralgia [Unknown]
  - Nausea [Unknown]
  - Asthenia [Unknown]

NARRATIVE: CASE EVENT DATE: 2018
